FAERS Safety Report 15336709 (Version 2)
Quarter: 2018Q4

REPORT INFORMATION
  Report Type: Report from Study
  Country: CL (occurrence: CL)
  Receive Date: 20180830
  Receipt Date: 20181119
  Transmission Date: 20190204
  Serious: Yes (Other)
  Sender: FDA-Public Use
  Company Number: CL-BRISTOL-MYERS SQUIBB COMPANY-BMS-2018-079115

PATIENT
  Sex: Female

DRUGS (1)
  1. ABATACEPT [Suspect]
     Active Substance: ABATACEPT
     Indication: RHEUMATOID ARTHRITIS
     Dosage: 125 MG, QWK
     Route: 058
     Dates: start: 20180112, end: 201808

REACTIONS (4)
  - Joint swelling [Recovering/Resolving]
  - Extrapulmonary tuberculosis [Recovering/Resolving]
  - Laboratory test abnormal [Recovering/Resolving]
  - Memory impairment [Recovering/Resolving]
